FAERS Safety Report 6694449-4 (Version None)
Quarter: 2010Q2

REPORT INFORMATION
  Report Type: 
  Country: None (occurrence: None)
  Receive Date: 20100420
  Receipt Date: 20100407
  Transmission Date: 20101027
  Serious: Yes (Hospitalization, Other)
  Sender: FDA-Public Use
  Company Number: 2009AL006799

PATIENT
  Age: 40 Year
  Sex: Female

DRUGS (7)
  1. CITALOPRAM HYDROBROMIDE [Suspect]
     Indication: DEPRESSED MOOD
     Dosage: 40 MG;UNK;PO
     Route: 048
  2. CLOZARIL [Concomitant]
  3. PRIADEL [Concomitant]
  4. OMEPRAZOLE [Concomitant]
  5. AMITRIPTYLINE [Concomitant]
  6. BALSALAZIDE [Concomitant]
  7. WARFARIN SODIUM [Concomitant]

REACTIONS (9)
  - COAGULOPATHY [None]
  - DIARRHOEA [None]
  - DRUG DOSE OMISSION [None]
  - INTESTINAL OBSTRUCTION [None]
  - MEDICATION ERROR [None]
  - NEUTROPHIL COUNT INCREASED [None]
  - PLATELET COUNT INCREASED [None]
  - PULMONARY EMBOLISM [None]
  - WHITE BLOOD CELL COUNT INCREASED [None]
